FAERS Safety Report 11779190 (Version 1)
Quarter: 2015Q4

REPORT INFORMATION
  Report Type: Spontaneous
  Country: CA (occurrence: CA)
  Receive Date: 20151125
  Receipt Date: 20151125
  Transmission Date: 20160304
  Serious: Yes (Other)
  Sender: FDA-Public Use
  Company Number: CA-TEVA-612128ACC

PATIENT
  Age: 35 Year
  Sex: Male
  Weight: 104 kg

DRUGS (4)
  1. CITALOPRAM [Concomitant]
     Active Substance: CITALOPRAM HYDROBROMIDE
  2. PANTOLOC [Concomitant]
     Active Substance: PANTOPRAZOLE SODIUM
  3. NOVO-DIVALPROEX [Suspect]
     Active Substance: DIVALPROEX SODIUM
     Indication: INTERMITTENT EXPLOSIVE DISORDER
     Dosage: 1000 MILLIGRAM DAILY;
     Route: 048
  4. NOVO-DIVALPROEX [Suspect]
     Active Substance: DIVALPROEX SODIUM
     Dosage: 750 MILLIGRAM DAILY;
     Route: 048

REACTIONS (5)
  - Intermittent explosive disorder [Unknown]
  - Therapeutic response decreased [Unknown]
  - Condition aggravated [Unknown]
  - Underdose [Unknown]
  - Drug ineffective [Unknown]
